FAERS Safety Report 4335475-X (Version None)
Quarter: 2004Q2

REPORT INFORMATION
  Report Type: 
  Country: None (occurrence: None)
  Receive Date: 20040409
  Receipt Date: 20040401
  Transmission Date: 20050107
  Serious: Yes (Death)
  Sender: FDA-Public Use
  Company Number: DK-BRISTOL-MYERS SQUIBB COMPANY-12548954

PATIENT
  Age: 57 Year
  Sex: Male

DRUGS (1)
  1. APROVEL TABS [Suspect]
     Indication: HYPERTENSION
     Dosage: ONCE DAILY INTAKE OF 3- 100MG UNIT DOSAGE. DURATION: 2 YEARS 2 MONTHS
     Route: 048
     Dates: start: 20020121, end: 20040322

REACTIONS (1)
  - SUDDEN DEATH [None]
